FAERS Safety Report 6619771-9 (Version None)
Quarter: 2010Q1

REPORT INFORMATION
  Report Type: 
  Country: None (occurrence: None)
  Receive Date: 20100309
  Receipt Date: 20100301
  Transmission Date: 20100710
  Serious: Yes (Other)
  Sender: FDA-Public Use
  Company Number: DE-JNJFOC-20100300411

PATIENT
  Age: 83 Year
  Sex: Male

DRUGS (3)
  1. RISPERDAL [Suspect]
     Indication: DRUG USE FOR UNKNOWN INDICATION
     Route: 048
     Dates: start: 20090721, end: 20090725
  2. DIPIPERON [Suspect]
     Indication: DRUG USE FOR UNKNOWN INDICATION
     Route: 048
     Dates: start: 20090721, end: 20090725
  3. DALMADORM [Concomitant]
     Route: 048
     Dates: start: 20090723, end: 20090731

REACTIONS (2)
  - PARKINSONISM [None]
  - PNEUMONIA [None]
